FAERS Safety Report 20656091 (Version 2)
Quarter: 2022Q3

REPORT INFORMATION
  Report Type: Report from Study
  Country: US (occurrence: US)
  Receive Date: 20220330
  Receipt Date: 20220804
  Transmission Date: 20221027
  Serious: Yes (Hospitalization, Other)
  Sender: FDA-Public Use
  Company Number: US-BRISTOL-MYERS SQUIBB COMPANY-2022-012095

PATIENT
  Age: 78 Year
  Sex: Female

DRUGS (24)
  1. PACLITAXEL [Suspect]
     Active Substance: PACLITAXEL
     Indication: Adenocarcinoma pancreas
     Dosage: DAYS 1, 8, AND 15 OF EACH 28-?DAY CYCLE
     Route: 042
     Dates: start: 20220112
  2. GEMCITABINE [Suspect]
     Active Substance: GEMCITABINE
     Indication: Adenocarcinoma pancreas
     Dosage: N DAYS 1, 8, AND 15 OF EACH 28-?DAY CYCLE
     Route: 042
     Dates: start: 20220112
  3. ATORVASTATIN [Concomitant]
     Active Substance: ATORVASTATIN
     Indication: Hyperlipidaemia
     Dosage: DAIILY
     Route: 048
     Dates: start: 20211216
  4. SYNTHROID [Concomitant]
     Active Substance: LEVOTHYROXINE SODIUM
     Indication: Hypothyroidism
     Dosage: DAILY
     Route: 048
     Dates: start: 201001
  5. ESCITALOPRAM OXALATE [Concomitant]
     Active Substance: ESCITALOPRAM OXALATE
     Indication: Depression
     Dosage: DAILY
     Route: 048
     Dates: start: 201601
  6. EZETIMIBE [Concomitant]
     Active Substance: EZETIMIBE
     Indication: Hyperlipidaemia
     Dosage: DAILY
     Route: 048
     Dates: start: 20211216
  7. MIRALAX [Concomitant]
     Active Substance: POLYETHYLENE GLYCOL 3350
     Indication: Constipation
     Dosage: AS NEEDED
     Route: 048
  8. LOSARTAN [Concomitant]
     Active Substance: LOSARTAN
     Indication: Hypertension
     Dosage: DAILY
     Route: 048
  9. LYRICA [Concomitant]
     Active Substance: PREGABALIN
     Indication: Back pain
     Dosage: AS NEEDED
     Route: 048
     Dates: start: 20211209
  10. MIDODRINE [Concomitant]
     Active Substance: MIDODRINE
     Indication: Orthostatic hypotension
     Route: 048
     Dates: start: 20211221
  11. VITAMINS [Concomitant]
     Active Substance: VITAMINS
     Indication: Nutritional supplementation
     Dosage: 1 TAB DAILY
     Route: 048
     Dates: start: 20211216
  12. OXYCODONE [Concomitant]
     Active Substance: OXYCODONE
     Indication: Back pain
     Dosage: AS NEEDED
     Route: 048
     Dates: start: 20211223
  13. ACETAMINOPHEN [Concomitant]
     Active Substance: ACETAMINOPHEN
     Indication: Back pain
     Dosage: AS NEEDED
     Route: 048
     Dates: start: 20211220
  14. LIDOCAINE [Concomitant]
     Active Substance: LIDOCAINE
     Indication: Back pain
     Dosage: AS NEEDED
     Route: 061
     Dates: start: 20211216
  15. FLUDROCORTISONE [Concomitant]
     Active Substance: FLUDROCORTISONE
     Indication: Orthostatic hypotension
     Dosage: DAILY
     Route: 048
     Dates: start: 20211208
  16. HYDROXYCHLOROQUINE [Concomitant]
     Active Substance: HYDROXYCHLOROQUINE
     Indication: Arthritis
     Route: 048
     Dates: start: 20210208
  17. METOPROLOL TARTRATE [Concomitant]
     Active Substance: METOPROLOL TARTRATE
     Indication: Atrial fibrillation
     Route: 048
     Dates: start: 20220210, end: 20220301
  18. METHOCARBAMOL [Concomitant]
     Active Substance: METHOCARBAMOL
     Indication: Back pain
     Dosage: AS NEEDED
     Route: 048
     Dates: start: 20220209
  19. ENOXAPARIN [Concomitant]
     Active Substance: ENOXAPARIN
     Indication: Prophylaxis
     Dosage: DAILY
     Route: 058
     Dates: start: 20220209
  20. ACETAMINOPHEN [Concomitant]
     Active Substance: ACETAMINOPHEN
     Indication: Back pain
     Route: 048
     Dates: start: 20220209
  21. PANTOPRAZOLE [Concomitant]
     Active Substance: PANTOPRAZOLE
     Indication: Prophylaxis
     Dosage: DAILY
     Route: 048
     Dates: start: 20190516
  22. BENZOCAINE-MENTHOL [Concomitant]
     Indication: Oropharyngeal pain
     Dosage: 1 LOZENGE AS NEEDED
     Route: 048
  23. APIXABAN [Concomitant]
     Active Substance: APIXABAN
     Indication: Atrial fibrillation
     Route: 048
     Dates: start: 20220212
  24. LIDOCAINE [Concomitant]
     Active Substance: LIDOCAINE
     Indication: Pain prophylaxis
     Dosage: AS NEEDED
     Dates: start: 20220209

REACTIONS (1)
  - Colitis [Recovered/Resolved with Sequelae]

NARRATIVE: CASE EVENT DATE: 20220228
